FAERS Safety Report 19489984 (Version 1)
Quarter: 2021Q3

REPORT INFORMATION
  Report Type: Spontaneous
  Country: US (occurrence: US)
  Receive Date: 20210704
  Receipt Date: 20210704
  Transmission Date: 20211014
  Serious: No
  Sender: FDA-Public Use
  Company Number: US-SUN PHARMACEUTICAL INDUSTRIES LTD-2021R1-280329

PATIENT
  Sex: Female

DRUGS (1)
  1. AZELASTINE. [Suspect]
     Active Substance: AZELASTINE HYDROCHLORIDE
     Indication: PRODUCT USED FOR UNKNOWN INDICATION
     Dosage: UNK
     Route: 065
     Dates: start: 20200107, end: 20200123

REACTIONS (6)
  - Oropharyngeal discomfort [Unknown]
  - Dry mouth [Unknown]
  - Hyperhidrosis [Unknown]
  - Diarrhoea [Unknown]
  - Headache [Unknown]
  - Palpitations [Unknown]
